FAERS Safety Report 16511811 (Version 2)
Quarter: 2019Q3

REPORT INFORMATION
  Report Type: Report from Study
  Country: US (occurrence: US)
  Receive Date: 20190701
  Receipt Date: 20190812
  Transmission Date: 20191004
  Serious: Yes (Hospitalization)
  Sender: FDA-Public Use
  Company Number: US-PFIZER INC-2019271841

PATIENT
  Age: 72 Year
  Sex: Male
  Weight: 73 kg

DRUGS (9)
  1. LEUCOVORIN. [Suspect]
     Active Substance: LEUCOVORIN
     Indication: NEOPLASM
     Dosage: DAYS 1 AND 15 OF EACH 28-DAY CYCLE (400 MG/M2,1 IN 2 WK)
     Route: 042
     Dates: start: 20190605, end: 20190605
  2. BEVACIZUMAB. [Suspect]
     Active Substance: BEVACIZUMAB
     Indication: NEOPLASM
     Dosage: 5 MG/KG, 1 IN 2 WK
     Route: 042
     Dates: start: 20190607, end: 20190607
  3. ABBV-621 [Suspect]
     Active Substance: EFTOZANERMIN ALFA
     Indication: NEOPLASM
     Dosage: DAYS 1, 8, 15, AND 22 OF EACH 28-DAY CYCLE (7.5 MG/KG,1 IN 1 WK)
     Route: 042
     Dates: start: 20190605, end: 20190610
  4. TAMSULOSIN HCL [Concomitant]
     Active Substance: TAMSULOSIN HYDROCHLORIDE
     Indication: BENIGN PROSTATIC HYPERPLASIA
     Dosage: 0.4 MG, 1 IN 1 D
     Route: 048
     Dates: start: 2012
  5. IRINOTECAN HCL [Suspect]
     Active Substance: IRINOTECAN HYDROCHLORIDE
     Indication: NEOPLASM
     Dosage: DAYS 1 AND 15 OF EACH 28-DAY CYCLE (180 MG/M2,1 IN 2 WK)
     Route: 042
     Dates: start: 20190605, end: 20190605
  6. 5-FU [Suspect]
     Active Substance: FLUOROURACIL
     Dosage: DAYS 1 AND 15 OF EACH 28-DAY CYCLE (3400 MG/M2,1 IN 2 WK)
     Route: 042
     Dates: start: 20190605, end: 20190607
  7. WARFARIN [Concomitant]
     Active Substance: WARFARIN
     Dosage: 4 MG, 1 IN 1 EVERY OTHER DAY
     Route: 048
     Dates: start: 2002
  8. 5-FU [Suspect]
     Active Substance: FLUOROURACIL
     Indication: NEOPLASM
     Dosage: DAYS 1 AND 15 OF EACH 28-DAY CYCLE (400 MG/M2,1 IN 2 WK)
     Route: 040
     Dates: start: 20190605, end: 20190605
  9. WARFARIN [Concomitant]
     Active Substance: WARFARIN
     Indication: DEEP VEIN THROMBOSIS
     Dosage: 3 MG, 1 IN 1 EVERY OTHER DAY
     Route: 048
     Dates: start: 2002

REACTIONS (1)
  - Mental status changes [Not Recovered/Not Resolved]

NARRATIVE: CASE EVENT DATE: 20190614
